FAERS Safety Report 19050976 (Version 1)
Quarter: 2021Q1

REPORT INFORMATION
  Report Type: Spontaneous
  Country: US (occurrence: US)
  Receive Date: 20210324
  Receipt Date: 20210324
  Transmission Date: 20210420
  Serious: No
  Sender: FDA-Public Use
  Company Number: None

PATIENT
  Age: 47 Year
  Sex: Female
  Weight: 80.1 kg

DRUGS (5)
  1. DEXTROAMPHET SACCHARAT, AMPHET ASPARTATE, DEXTROAMPHET SULFATE AND AMPHET SULFAT [Suspect]
     Active Substance: AMPHETAMINE ASPARTATE\AMPHETAMINE SULFATE\DEXTROAMPHETAMINE SACCHARATE\DEXTROAMPHETAMINE SULFATE
     Indication: ATTENTION DEFICIT HYPERACTIVITY DISORDER
     Route: 048
     Dates: start: 20210319, end: 20210323
  2. MELOXICAM. [Concomitant]
     Active Substance: MELOXICAM
  3. ADDERALL [Concomitant]
     Active Substance: AMPHETAMINE ASPARTATE\AMPHETAMINE SULFATE\DEXTROAMPHETAMINE SACCHARATE\DEXTROAMPHETAMINE SULFATE
  4. FLONASE [Concomitant]
     Active Substance: FLUTICASONE PROPIONATE
  5. VIT?D [Concomitant]

REACTIONS (23)
  - Nausea [None]
  - Arthralgia [None]
  - Dyspnoea [None]
  - Pain [None]
  - Irritability [None]
  - Palpitations [None]
  - Mental impairment [None]
  - Drug ineffective [None]
  - Pelvic pain [None]
  - Abdominal pain upper [None]
  - Near death experience [None]
  - Headache [None]
  - Memory impairment [None]
  - Neck pain [None]
  - Middle insomnia [None]
  - Fatigue [None]
  - Anxiety [None]
  - Product substitution issue [None]
  - Mood altered [None]
  - Feeling abnormal [None]
  - Pain in extremity [None]
  - Vision blurred [None]
  - Bruxism [None]

NARRATIVE: CASE EVENT DATE: 20210320
